FAERS Safety Report 7704044-3 (Version None)
Quarter: 2011Q3

REPORT INFORMATION
  Report Type: 
  Country: None (occurrence: None)
  Receive Date: 20110729
  Receipt Date: 20101227
  Transmission Date: 20111222
  Serious: Yes (Other)
  Sender: FDA-Public Use
  Company Number: US-JNJFOC-20101103185

PATIENT
  Age: 67 Year
  Sex: Female
  Weight: 56.6996 kg

DRUGS (8)
  1. MORPHINE [Concomitant]
  2. BIOTIN (BIOTIN) [Concomitant]
  3. OMEPRAZOLE [Concomitant]
  4. POTASSIUM CHLORIDE [Concomitant]
  5. IMODIUM MULTI-SYMPTOM RELIEF [Suspect]
     Indication: DIARRHOEA
     Dosage: 20 DOSE(S), 1 IN 1 DAY, ORAL
     Route: 048
     Dates: start: 20090101
  6. VITAMIN D [Concomitant]
  7. ZINC (ZINC) [Concomitant]
  8. FERROUS SULFATE TAB [Concomitant]

REACTIONS (2)
  - INCORRECT DRUG ADMINISTRATION DURATION [None]
  - OVERDOSE [None]
